FAERS Safety Report 13000713 (Version 1)
Quarter: 2016Q4

REPORT INFORMATION
  Report Type: Spontaneous
  Country: IL (occurrence: IL)
  Receive Date: 20161206
  Receipt Date: 20161206
  Transmission Date: 20170207
  Serious: Yes (Death)
  Sender: FDA-Public Use
  Company Number: IL-TEVA-696353ACC

PATIENT
  Age: 75 Year
  Sex: Male

DRUGS (1)
  1. RIBOMUSTIN [Suspect]
     Active Substance: BENDAMUSTINE HYDROCHLORIDE
     Indication: PLASMA CELL MYELOMA
     Dosage: 70 MG/M2, CYCLIC (ONCE WEEKLY)
     Route: 042

REACTIONS (3)
  - Prescribed underdose [Unknown]
  - Disease progression [Fatal]
  - Therapy non-responder [Unknown]
